FAERS Safety Report 19385605 (Version 1)
Quarter: 2021Q2

REPORT INFORMATION
  Report Type: Spontaneous
  Country: US (occurrence: US)
  Receive Date: 20210606
  Receipt Date: 20210606
  Transmission Date: 20210717
  Serious: Yes (Hospitalization)
  Sender: FDA-Public Use
  Company Number: None

PATIENT
  Age: 51 Year
  Sex: Female
  Weight: 70.2 kg

DRUGS (13)
  1. COREG [Concomitant]
     Active Substance: CARVEDILOL
  2. HCTZ [Concomitant]
     Active Substance: HYDROCHLOROTHIAZIDE
  3. VITAMIN D3 [Concomitant]
     Active Substance: CHOLECALCIFEROL
  4. SULFAMETOXAZOL?TMP DS [Suspect]
     Active Substance: SULFAMETHOXAZOLE\TRIMETHOPRIM
     Indication: URINARY TRACT INFECTION
     Dosage: ?          QUANTITY:20 TABLET(S);?
     Route: 048
     Dates: start: 20210508, end: 20210509
  5. SINGULAIR [Concomitant]
     Active Substance: MONTELUKAST SODIUM
  6. CIMETIDINE [Concomitant]
     Active Substance: CIMETIDINE
  7. ASPIRIN. [Concomitant]
     Active Substance: ASPIRIN
  8. PROSAIC [Concomitant]
  9. NEXIUM [Concomitant]
     Active Substance: ESOMEPRAZOLE MAGNESIUM
  10. AVOVASTANTIN [Concomitant]
  11. ZYRTEC [Concomitant]
     Active Substance: CETIRIZINE HYDROCHLORIDE
  12. LISINOPRIL. [Concomitant]
     Active Substance: LISINOPRIL
  13. VITAMIN D2 [Concomitant]
     Active Substance: ERGOCALCIFEROL

REACTIONS (3)
  - Heart rate increased [None]
  - Anaphylactic reaction [None]
  - Hypersensitivity [None]

NARRATIVE: CASE EVENT DATE: 20210509
